FAERS Safety Report 5967553-3 (Version None)
Quarter: 2008Q4

REPORT INFORMATION
  Report Type: 
  Country: None (occurrence: None)
  Receive Date: 20081125
  Receipt Date: 20081117
  Transmission Date: 20090506
  Serious: Yes (Other)
  Sender: FDA-Public Use
  Company Number: DE-PFIZER INC-2008097848

PATIENT
  Age: 18 Year
  Sex: Female

DRUGS (1)
  1. DEPO-CLINOVIR [Suspect]
     Indication: CONTRACEPTION
     Dosage: FREQ:FIRST INJECTION
     Route: 030
     Dates: start: 20081002, end: 20081002

REACTIONS (4)
  - ALOPECIA [None]
  - DEPRESSION [None]
  - SUICIDAL BEHAVIOUR [None]
  - WEIGHT DECREASED [None]
